FAERS Safety Report 25255910 (Version 1)
Quarter: 2025Q2

REPORT INFORMATION
  Report Type: Spontaneous
  Country: CA (occurrence: CA)
  Receive Date: 20250430
  Receipt Date: 20250430
  Transmission Date: 20250717
  Serious: Yes (Hospitalization)
  Sender: PFIZER
  Company Number: CA-PFIZER INC-202500089288

PATIENT
  Age: 35 Year
  Sex: Male
  Weight: 96 kg

DRUGS (11)
  1. CISPLATIN [Suspect]
     Active Substance: CISPLATIN
     Indication: Testis cancer
     Route: 042
  2. BLEOMYCIN SULFATE [Suspect]
     Active Substance: BLEOMYCIN SULFATE
     Indication: Testis cancer
  3. ETOPOSIDE [Suspect]
     Active Substance: ETOPOSIDE
     Indication: Testis cancer
  4. ACETAMINOPHEN [Concomitant]
     Active Substance: ACETAMINOPHEN
  5. DEXAMETHASONE [Concomitant]
     Active Substance: DEXAMETHASONE
     Route: 065
  6. EMEND [Concomitant]
     Active Substance: APREPITANT
  7. FUROSEMIDE [Concomitant]
     Active Substance: FUROSEMIDE
     Route: 065
  8. OLANZAPINE [Concomitant]
     Active Substance: OLANZAPINE
  9. PANTOPRAZOLE [Concomitant]
     Active Substance: PANTOPRAZOLE
  10. POLYETHYLENE GLYCOLS [Concomitant]
     Active Substance: POLYETHYLENE GLYCOLS
  11. PROCHLORPERAZINE [Concomitant]
     Active Substance: PROCHLORPERAZINE

REACTIONS (2)
  - Febrile neutropenia [Recovered/Resolved]
  - Pharyngitis streptococcal [Recovered/Resolved]
